FAERS Safety Report 17611401 (Version 1)
Quarter: 2020Q2

REPORT INFORMATION
  Report Type: Spontaneous
  Country: US (occurrence: US)
  Receive Date: 20200401
  Receipt Date: 20200401
  Transmission Date: 20200713
  Serious: Yes (Other)
  Sender: FDA-Public Use
  Company Number: NVSC2020US088099

PATIENT
  Age: 64 Year
  Sex: Female

DRUGS (1)
  1. CARBIDOPA,ENTACAPONE,LEVODOPA [Suspect]
     Active Substance: CARBIDOPA\ENTACAPONE\LEVODOPA
     Indication: PARKINSON^S DISEASE
     Dosage: UNK (CARBIDOPA/LEVODOPA 25/100 MG 1.5 TABS, ENTACAPONE 200 MG,)
     Route: 065

REACTIONS (3)
  - Freezing phenomenon [Unknown]
  - On and off phenomenon [Unknown]
  - Intentional dose omission [Unknown]
